FAERS Safety Report 8157165-8 (Version None)
Quarter: 2012Q1

REPORT INFORMATION
  Report Type: 
  Country: None (occurrence: None)
  Receive Date: 20120222
  Receipt Date: 20120213
  Transmission Date: 20120608
  Serious: Yes (Other)
  Sender: FDA-Public Use
  Company Number: PHHY2012GR012231

PATIENT
  Age: 46 Year
  Sex: Female
  Weight: 70 kg

DRUGS (14)
  1. FENTANYL [Interacting]
     Dosage: 250 UG, UNK
  2. SEVOFLURANE [Concomitant]
     Indication: MAINTENANCE OF ANAESTHESIA
     Dosage: 1.2 MAC
  3. TRAMADOL HCL [Suspect]
     Indication: PAIN
     Dosage: 100 MG, UNK
     Route: 042
  4. SUXAMETHONIUM [Concomitant]
     Indication: NEUROMUSCULAR BLOCKING THERAPY
     Dosage: 75 MG, UNK
  5. ACETAMINOPHEN [Concomitant]
     Dosage: 1 G, UNK
  6. METOCLOPRAMIDE [Interacting]
     Dosage: 10 MG, UNK
     Route: 042
  7. PROPOFOL [Concomitant]
     Indication: INDUCTION OF ANAESTHESIA
     Dosage: 150 MG, UNK
  8. NEOSTIGMINE [Concomitant]
     Indication: ANAESTHESIA REVERSAL
     Dosage: 2.5 MG, UNK
  9. RANITIDINE [Concomitant]
     Dosage: 50 MG, UNK
     Route: 042
  10. MIDAZOLAM [Concomitant]
     Dosage: 1 MG, UNK
     Route: 042
  11. ROCURONIUM BROMIDE [Concomitant]
     Indication: NEUROMUSCULAR BLOCKING THERAPY
     Dosage: 50 MG, UNK
  12. NALOXONE [Concomitant]
     Indication: RESPIRATORY DEPRESSION
     Dosage: 2 MG, UNK
  13. PARECOXIB SODIUM [Concomitant]
     Dosage: 40 MG, UNK
  14. ATROPINE [Concomitant]
     Indication: ANAESTHESIA REVERSAL
     Dosage: 1 MG, UNK

REACTIONS (7)
  - RESPIRATORY DEPRESSION [None]
  - LOSS OF CONSCIOUSNESS [None]
  - ANTICHOLINERGIC SYNDROME [None]
  - APNOEA [None]
  - UNRESPONSIVE TO STIMULI [None]
  - DRUG INTERACTION [None]
  - MYDRIASIS [None]
